FAERS Safety Report 9194243 (Version 1)
Quarter: 2013Q1

REPORT INFORMATION
  Report Type: Spontaneous
  Country: DE (occurrence: DE)
  Receive Date: 20130327
  Receipt Date: 20130327
  Transmission Date: 20140127
  Serious: Yes (Other)
  Sender: FDA-Public Use
  Company Number: GXKR2013DE001285

PATIENT
  Age: 31 Year
  Sex: Female

DRUGS (1)
  1. CEFUHEXAL [Suspect]
     Dosage: 250 MG, UNK
     Route: 048

REACTIONS (2)
  - Loss of consciousness [Unknown]
  - Alcohol interaction [Unknown]
